FAERS Safety Report 5279284-6 (Version None)
Quarter: 2007Q1

REPORT INFORMATION
  Report Type: 
  Country: None (occurrence: None)
  Receive Date: 20070328
  Receipt Date: 20060605
  Transmission Date: 20070707
  Serious: No
  Sender: FDA-Public Use
  Company Number: US-AMGEN-KDL181938

PATIENT
  Sex: Female

DRUGS (3)
  1. NEULASTA [Suspect]
     Indication: CHEMOTHERAPY
     Dates: start: 20060405
  2. DOXORUBICIN HYDROCHLORIDE [Concomitant]
  3. CYTOXAN [Concomitant]

REACTIONS (1)
  - DRUG INEFFECTIVE [None]
